FAERS Safety Report 16329424 (Version 1)
Quarter: 2019Q2

REPORT INFORMATION
  Report Type: Spontaneous
  Country: US (occurrence: US)
  Receive Date: 20190520
  Receipt Date: 20190520
  Transmission Date: 20190711
  Serious: No
  Sender: FDA-Public Use
  Company Number: US-JNJFOC-20190445203

PATIENT
  Sex: Female
  Weight: 86.18 kg

DRUGS (3)
  1. WOMENS ROGAINE [Suspect]
     Active Substance: MINOXIDIL
     Route: 061
  2. TYLENOL [Concomitant]
     Active Substance: ACETAMINOPHEN
     Indication: PRODUCT USED FOR UNKNOWN INDICATION
     Route: 065
  3. WOMENS ROGAINE [Suspect]
     Active Substance: MINOXIDIL
     Indication: ALOPECIA
     Dosage: RECOMMENDED DOSE
     Route: 061

REACTIONS (1)
  - Drug ineffective [Unknown]
